FAERS Safety Report 9844886 (Version 1)
Quarter: 2014Q1

REPORT INFORMATION
  Report Type: Report from Study
  Country: CA (occurrence: CA)
  Receive Date: 20140127
  Receipt Date: 20140127
  Transmission Date: 20141002
  Serious: Yes (Other)
  Sender: FDA-Public Use
  Company Number: CA-JNJFOC-20140110666

PATIENT
  Age: 12 Year
  Sex: Female
  Weight: 41 kg

DRUGS (8)
  1. REMICADE [Suspect]
     Indication: UVEITIS
     Route: 042
     Dates: start: 20131128
  2. REMICADE [Suspect]
     Indication: UVEITIS
     Route: 042
     Dates: start: 20140116
  3. REMICADE [Suspect]
     Indication: UVEITIS
     Route: 042
     Dates: start: 20120705
  4. REMICADE [Suspect]
     Indication: JUVENILE IDIOPATHIC ARTHRITIS
     Route: 042
     Dates: start: 20140116
  5. REMICADE [Suspect]
     Indication: JUVENILE IDIOPATHIC ARTHRITIS
     Route: 042
     Dates: start: 20131128
  6. REMICADE [Suspect]
     Indication: JUVENILE IDIOPATHIC ARTHRITIS
     Route: 042
     Dates: start: 20120705
  7. METHOTREXATE [Concomitant]
     Route: 048
  8. PREDNISONE [Concomitant]
     Route: 048

REACTIONS (8)
  - Infusion related reaction [Recovered/Resolved]
  - Throat tightness [Recovered/Resolved]
  - Chest discomfort [Recovered/Resolved]
  - Dyspnoea [Recovered/Resolved]
  - Pharyngeal oedema [Recovered/Resolved]
  - Flushing [Recovered/Resolved]
  - Off label use [Unknown]
  - Malaise [Unknown]
